FAERS Safety Report 16500914 (Version 1)
Quarter: 2019Q3

REPORT INFORMATION
  Report Type: Report from Study
  Country: FR (occurrence: FR)
  Receive Date: 20190701
  Receipt Date: 20190701
  Transmission Date: 20191004
  Serious: Yes (Hospitalization, Other)
  Sender: FDA-Public Use
  Company Number: FR-TEVA-2019-FR-1070278

PATIENT
  Age: 45 Year
  Sex: Male

DRUGS (1)
  1. KETOPROFEN. [Suspect]
     Active Substance: KETOPROFEN
     Indication: BURSITIS
     Route: 061

REACTIONS (6)
  - Oedema [Unknown]
  - Joint range of motion decreased [Unknown]
  - Pain [Unknown]
  - Dermatitis bullous [Recovered/Resolved with Sequelae]
  - Staphylococcal infection [Unknown]
  - Off label use [Unknown]
